FAERS Safety Report 6613370-0 (Version None)
Quarter: 2010Q1

REPORT INFORMATION
  Report Type: 
  Country: None (occurrence: None)
  Receive Date: 20100304
  Receipt Date: 20100218
  Transmission Date: 20100710
  Serious: Yes (Hospitalization, Other)
  Sender: FDA-Public Use
  Company Number: US-CELGENEUS-163-C5013-10020412

PATIENT
  Sex: Male
  Weight: 88.6 kg

DRUGS (23)
  1. CC-5013 [Suspect]
     Route: 065
     Dates: start: 20100201, end: 20100203
  2. COZAAR [Concomitant]
     Indication: DRUG USE FOR UNKNOWN INDICATION
     Route: 065
  3. ALLOPURINOL [Concomitant]
     Indication: DRUG USE FOR UNKNOWN INDICATION
     Route: 048
     Dates: start: 20100203
  4. TIOTROPIUM BROMIDE [Concomitant]
     Route: 048
     Dates: start: 20100203
  5. TIOTROPIUM BROMIDE [Concomitant]
     Dosage: 0-2MG/ML
     Route: 065
  6. TIMOLOL MALEATE [Concomitant]
     Indication: DRUG USE FOR UNKNOWN INDICATION
     Route: 047
     Dates: start: 20100203
  7. SOLU-MEDROL [Concomitant]
     Indication: DRUG USE FOR UNKNOWN INDICATION
     Route: 065
  8. ALBUTEROL [Concomitant]
     Dosage: 2.5MG/3ML
     Route: 055
     Dates: start: 20100203
  9. ALBUTEROL [Concomitant]
  10. ADVAIR DISKUS 100/50 [Concomitant]
     Indication: DRUG USE FOR UNKNOWN INDICATION
     Dosage: 250/50
     Route: 055
     Dates: start: 20100203
  11. DECADRON [Concomitant]
     Indication: DRUG USE FOR UNKNOWN INDICATION
     Route: 051
     Dates: start: 20100204
  12. COMPAZINE [Concomitant]
     Indication: NAUSEA
     Route: 051
  13. TYLENOL-500 [Concomitant]
     Indication: PAIN
     Route: 048
  14. ZOCOR [Concomitant]
     Indication: DRUG USE FOR UNKNOWN INDICATION
     Route: 065
  15. ACIPHEX [Concomitant]
     Indication: DRUG USE FOR UNKNOWN INDICATION
     Route: 065
  16. PREDNISONE [Concomitant]
     Indication: DRUG USE FOR UNKNOWN INDICATION
     Route: 065
  17. NORVASC [Concomitant]
     Indication: DRUG USE FOR UNKNOWN INDICATION
     Route: 065
  18. COLACE [Concomitant]
     Indication: DRUG USE FOR UNKNOWN INDICATION
     Route: 065
  19. AMBIEN [Concomitant]
     Indication: DRUG USE FOR UNKNOWN INDICATION
     Route: 065
  20. SODIUM BICARBONATE [Concomitant]
     Indication: DRUG USE FOR UNKNOWN INDICATION
     Route: 065
  21. SODIUM BICARBONATE [Concomitant]
     Route: 065
  22. NORMAL SALINE [Concomitant]
     Indication: DRUG USE FOR UNKNOWN INDICATION
     Dosage: HALF WITH 20MEQ + 50MEQ SODIUM BICARBONATE AT 125ML PER HOUR
     Route: 065
  23. POTASSIUM CHLORIDE [Concomitant]
     Indication: DRUG USE FOR UNKNOWN INDICATION
     Route: 065

REACTIONS (6)
  - HYPERBILIRUBINAEMIA [None]
  - PNEUMONIA [None]
  - RENAL FAILURE ACUTE [None]
  - SEPTIC SHOCK [None]
  - TUMOUR FLARE [None]
  - TUMOUR LYSIS SYNDROME [None]
